FAERS Safety Report 14581236 (Version 1)
Quarter: 2018Q1

REPORT INFORMATION
  Report Type: Spontaneous
  Country: US (occurrence: US)
  Receive Date: 20180227
  Receipt Date: 20180227
  Transmission Date: 20180509
  Serious: No
  Sender: FDA-Public Use
  Company Number: None

PATIENT
  Age: 64 Year
  Sex: Female

DRUGS (11)
  1. LETAIRIS [Suspect]
     Active Substance: AMBRISENTAN
     Indication: CONNECTIVE TISSUE DISORDER
     Route: 048
     Dates: start: 201801, end: 201802
  2. LEVOTHYROXINE. [Concomitant]
     Active Substance: LEVOTHYROXINE
  3. LETAIRIS [Suspect]
     Active Substance: AMBRISENTAN
     Indication: HEART DISEASE CONGENITAL
     Route: 048
     Dates: start: 201801, end: 201802
  4. VENTOLIN HFA [Concomitant]
     Active Substance: ALBUTEROL SULFATE
  5. FUROSEMIDE. [Concomitant]
     Active Substance: FUROSEMIDE
  6. K-TAB [Concomitant]
     Active Substance: POTASSIUM CHLORIDE
  7. TIMOPTIC [Concomitant]
     Active Substance: TIMOLOL MALEATE
  8. OMEPRAZOLE. [Concomitant]
     Active Substance: OMEPRAZOLE
  9. XALATAN [Concomitant]
     Active Substance: LATANOPROST
  10. FLONASE [Concomitant]
     Active Substance: FLUTICASONE PROPIONATE
  11. SILDENAFIL. [Concomitant]
     Active Substance: SILDENAFIL

REACTIONS (5)
  - Feeling abnormal [None]
  - Dyspnoea [None]
  - Oedema peripheral [None]
  - Inability to afford medication [None]
  - Weight increased [None]

NARRATIVE: CASE EVENT DATE: 20180226
